FAERS Safety Report 6184478-1 (Version None)
Quarter: 2009Q2

REPORT INFORMATION
  Report Type: 
  Country: None (occurrence: None)
  Receive Date: 20090508
  Receipt Date: 20090508
  Transmission Date: 20091009
  Serious: Yes (Disabling, Other)
  Sender: FDA-Public Use
  Company Number: US-PFIZER INC-2009177331

PATIENT
  Sex: Female
  Weight: 56.689 kg

DRUGS (3)
  1. NEURONTIN [Suspect]
     Indication: PAIN IN EXTREMITY
     Dosage: 100 MG, 3X/DAY
     Dates: start: 20010101
  2. NEURONTIN [Suspect]
     Indication: BACK PAIN
  3. ZOLOFT [Suspect]
     Indication: DEPRESSION
     Dosage: 100 MG, 1X/DAY
     Dates: start: 20010101

REACTIONS (2)
  - ILL-DEFINED DISORDER [None]
  - SURGERY [None]
